FAERS Safety Report 7345057-3 (Version None)
Quarter: 2011Q1

REPORT INFORMATION
  Report Type: 
  Country: None (occurrence: None)
  Receive Date: 20110310
  Receipt Date: 20110301
  Transmission Date: 20110831
  Serious: Yes (Hospitalization)
  Sender: FDA-Public Use
  Company Number: US-ELI_LILLY_AND_COMPANY-US201007000211

PATIENT
  Sex: Female

DRUGS (4)
  1. FORTEO [Suspect]
     Dosage: 20 UG, DAILY (1/D)
  2. COUMADIN [Concomitant]
  3. FORTEO [Suspect]
     Dosage: 20 UG, DAILY (1/D)
     Dates: end: 20110131
  4. FORTEO [Suspect]
     Indication: OSTEOPOROSIS
     Dosage: 20 UG, DAILY (1/D)
     Dates: start: 20100506

REACTIONS (9)
  - HAEMOPTYSIS [None]
  - THYROID FUNCTION TEST ABNORMAL [None]
  - OEDEMA PERIPHERAL [None]
  - JOINT SWELLING [None]
  - ASTHENIA [None]
  - BLOOD CALCIUM INCREASED [None]
  - INJECTION SITE HAEMATOMA [None]
  - BRONCHITIS [None]
  - PULMONARY HAEMORRHAGE [None]
